FAERS Safety Report 16055320 (Version 2)
Quarter: 2019Q2

REPORT INFORMATION
  Report Type: Report from Study
  Country: US (occurrence: US)
  Receive Date: 20190311
  Receipt Date: 20190625
  Transmission Date: 20190711
  Serious: No
  Sender: FDA-Public Use
  Company Number: PHEH2019US009528

PATIENT
  Sex: Female

DRUGS (2)
  1. GLATOPA [Suspect]
     Active Substance: GLATIRAMER ACETATE
     Indication: MULTIPLE SCLEROSIS
     Dosage: 40 MG, TID, ROTATING SITES
     Route: 058
     Dates: start: 201811
  2. GLATOPA [Suspect]
     Active Substance: GLATIRAMER ACETATE
     Dosage: 40 MG, 3X A WEEK
     Route: 058
     Dates: start: 20190612

REACTIONS (10)
  - Heart rate irregular [Unknown]
  - Injection site oedema [Not Recovered/Not Resolved]
  - Gait disturbance [Unknown]
  - Cold sweat [Unknown]
  - Dizziness [Unknown]
  - Pallor [Unknown]
  - Asthenia [Unknown]
  - Muscle spasms [Unknown]
  - Vertigo [Unknown]
  - Confusional state [Unknown]
